FAERS Safety Report 10561660 (Version 1)
Quarter: 2014Q4

REPORT INFORMATION
  Report Type: Spontaneous
  Country: US (occurrence: US)
  Receive Date: 20141103
  Receipt Date: 20141103
  Transmission Date: 20150529
  Serious: No
  Sender: FDA-Public Use
  Company Number: US-BAXTER-2014BAX063028

PATIENT
  Sex: Female

DRUGS (3)
  1. TISSEEL VH [Suspect]
     Active Substance: FIBRINOGEN HUMAN\THROMBIN HUMAN
     Indication: OFF LABEL USE
  2. OXYCODONE [Concomitant]
     Active Substance: OXYCODONE
     Indication: PAIN
     Route: 065
  3. TISSEEL VH [Suspect]
     Active Substance: FIBRINOGEN HUMAN\THROMBIN HUMAN
     Indication: GASTRECTOMY
     Route: 061

REACTIONS (1)
  - Urticaria [Unknown]
